FAERS Safety Report 8361657-6 (Version None)
Quarter: 2012Q2

REPORT INFORMATION
  Report Type: 
  Country: None (occurrence: None)
  Receive Date: 20120515
  Receipt Date: 20110908
  Transmission Date: 20120825
  Serious: No
  Sender: FDA-Public Use
  Company Number: US-ABBOTT-11P-163-0852634-00

PATIENT
  Sex: Female

DRUGS (1)
  1. PROMETRIUM [Suspect]
     Indication: MENORRHAGIA
     Dosage: 1 IN 1 D DAYS 14-25 OF CYCLE

REACTIONS (1)
  - AMENORRHOEA [None]
